FAERS Safety Report 20475626 (Version 2)
Quarter: 2022Q1

REPORT INFORMATION
  Report Type: Spontaneous
  Country: US (occurrence: US)
  Receive Date: 20220215
  Receipt Date: 20220331
  Transmission Date: 20220423
  Serious: No
  Sender: FDA-Public Use
  Company Number: US-PFIZER INC-202200107625

PATIENT
  Age: 13 Year
  Sex: Female
  Weight: 59.87 kg

DRUGS (2)
  1. GENOTROPIN [Suspect]
     Active Substance: SOMATROPIN
     Indication: Growth hormone deficiency
     Dosage: UNK (2.8 NIGHTLY)
  2. AMITIZA [Concomitant]
     Active Substance: LUBIPROSTONE
     Dosage: 8 MG, 2X/DAY
     Dates: start: 20211210

REACTIONS (3)
  - Wrong technique in device usage process [Unknown]
  - Device leakage [Unknown]
  - Drug dose omission by device [Unknown]
